FAERS Safety Report 14129413 (Version 2)
Quarter: 2018Q1

REPORT INFORMATION
  Report Type: Spontaneous
  Country: ES (occurrence: ES)
  Receive Date: 20171026
  Receipt Date: 20180208
  Transmission Date: 20180508
  Serious: Yes (Life-Threatening, Other)
  Sender: FDA-Public Use
  Company Number: ES-ASTRAZENECA-2017SF08219

PATIENT
  Age: 24 Year
  Sex: Female

DRUGS (5)
  1. QUETIAPINE. [Suspect]
     Active Substance: QUETIAPINE
     Route: 048
  2. DULOXETINE. [Suspect]
     Active Substance: DULOXETINE
     Route: 048
  3. COCAINE [Concomitant]
     Active Substance: COCAINE
  4. CLORAZEPATE [Suspect]
     Active Substance: CLORAZEPATE DIPOTASSIUM
     Route: 048
  5. TOPIRAMATE. [Suspect]
     Active Substance: TOPIRAMATE
     Route: 048

REACTIONS (4)
  - Overdose [Unknown]
  - Coma [Recovering/Resolving]
  - Coma blister [Recovered/Resolved]
  - Rash erythematous [Recovered/Resolved]
